FAERS Safety Report 16333494 (Version 1)
Quarter: 2019Q2

REPORT INFORMATION
  Report Type: Spontaneous
  Country: ES (occurrence: ES)
  Receive Date: 20190520
  Receipt Date: 20190520
  Transmission Date: 20190711
  Serious: Yes (Hospitalization)
  Sender: FDA-Public Use
  Company Number: ES-TEVA-2019-ES-1053097

PATIENT
  Age: 85 Year
  Sex: Male

DRUGS (1)
  1. AMOXICILINA CLAVULANICO (AMOXICILLIN\CLAVULANIC ACID) [Suspect]
     Active Substance: AMOXICILLIN\CLAVULANIC ACID
     Indication: PNEUMONIA
     Dosage: 1 GR EVERY 8 HOURS
     Route: 042
     Dates: start: 20180322, end: 20190326

REACTIONS (1)
  - Hepatitis acute [Recovered/Resolved]

NARRATIVE: CASE EVENT DATE: 20180326
